FAERS Safety Report 13960971 (Version 1)
Quarter: 2017Q3

REPORT INFORMATION
  Report Type: Spontaneous
  Country: US (occurrence: US)
  Receive Date: 20170912
  Receipt Date: 20170912
  Transmission Date: 20171128
  Serious: No
  Sender: FDA-Public Use
  Company Number: US-PFIZER INC-2017392973

PATIENT
  Age: 62 Year
  Sex: Female
  Weight: 82.99 kg

DRUGS (1)
  1. EUCRISA [Suspect]
     Active Substance: CRISABOROLE
     Dosage: 2X/DAY

REACTIONS (3)
  - Depression [Unknown]
  - Eyelid irritation [Recovered/Resolved]
  - Anxiety [Unknown]
